FAERS Safety Report 8326061-5 (Version None)
Quarter: 2012Q2

REPORT INFORMATION
  Report Type: 
  Country: None (occurrence: None)
  Receive Date: 20120501
  Receipt Date: 20120423
  Transmission Date: 20120825
  Serious: Yes (Death)
  Sender: FDA-Public Use
  Company Number: US-GLAXOSMITHKLINE-A0974791A

PATIENT
  Age: 85 Year
  Sex: Male

DRUGS (5)
  1. CHOLESTEROL REDUCING AGENT [Concomitant]
  2. NAMENDA [Concomitant]
  3. EXELON [Concomitant]
     Route: 062
  4. ADVAIR DISKUS 100/50 [Suspect]
     Indication: CHRONIC OBSTRUCTIVE PULMONARY DISEASE
     Dosage: 1PUFF TWICE PER DAY
     Route: 055
  5. BLOOD PRESSURE MEDICATION [Concomitant]

REACTIONS (2)
  - FALL [None]
  - RENAL FAILURE [None]
